FAERS Safety Report 5987295-8 (Version None)
Quarter: 2008Q4

REPORT INFORMATION
  Report Type: 
  Country: None (occurrence: None)
  Receive Date: 20081203
  Receipt Date: 20081121
  Transmission Date: 20090506
  Serious: Yes (Hospitalization)
  Sender: FDA-Public Use
  Company Number: 100#08#2008-05858

PATIENT
  Age: 64 Year
  Sex: Female

DRUGS (5)
  1. METFORMIN HCL [Suspect]
     Indication: DRUG USE FOR UNKNOWN INDICATION
     Dosage: 3000 MG
  2. ALLOPURINOL [Concomitant]
  3. VERAPAMIL [Concomitant]
  4. IRBESARTAN [Concomitant]
  5. FUROSEMIDE [Concomitant]

REACTIONS (7)
  - BLOOD PRESSURE DECREASED [None]
  - DIALYSIS [None]
  - HYPOGLYCAEMIA [None]
  - LACTIC ACIDOSIS [None]
  - RENAL FAILURE ACUTE [None]
  - SOMNOLENCE [None]
  - TACHYPNOEA [None]
